FAERS Safety Report 18087836 (Version 1)
Quarter: 2020Q3

REPORT INFORMATION
  Report Type: Spontaneous
  Country: US (occurrence: US)
  Receive Date: 20200729
  Receipt Date: 20200729
  Transmission Date: 20201103
  Serious: No
  Sender: FDA-Public Use
  Company Number: US-APOTEX-2020AP010996

PATIENT
  Sex: Female

DRUGS (2)
  1. RISEDRONATE SODIUM TABLETS USP [Suspect]
     Active Substance: RISEDRONATE SODIUM
     Indication: PRODUCT USED FOR UNKNOWN INDICATION
     Dosage: 1 DF, UNK
     Route: 065
     Dates: start: 202004
  2. RISEDRONATE SODIUM TABLETS USP [Suspect]
     Active Substance: RISEDRONATE SODIUM
     Dosage: 2 DF, UNK
     Route: 065

REACTIONS (2)
  - Vulvovaginal pruritus [Recovered/Resolved]
  - Umbilical erythema [Recovering/Resolving]

NARRATIVE: CASE EVENT DATE: 202004
